FAERS Safety Report 12639584 (Version 1)
Quarter: 2016Q3

REPORT INFORMATION
  Report Type: Spontaneous
  Country: US (occurrence: None)
  Receive Date: 20160809
  Receipt Date: 20160809
  Transmission Date: 20161109
  Serious: Yes (Other)
  Sender: FDA-Public Use
  Company Number: None

PATIENT
  Age: 35 Year
  Sex: Female
  Weight: 73.94 kg

DRUGS (2)
  1. GABAPENTIN. [Concomitant]
     Active Substance: GABAPENTIN
  2. LYRICA [Suspect]
     Active Substance: PREGABALIN

REACTIONS (24)
  - Hypoaesthesia [None]
  - Tearfulness [None]
  - Orthostatic hypotension [None]
  - Pyrexia [None]
  - Musculoskeletal stiffness [None]
  - Dizziness [None]
  - Joint stiffness [None]
  - Bladder pain [None]
  - Flatulence [None]
  - Polyuria [None]
  - Gait disturbance [None]
  - Blood pressure fluctuation [None]
  - Urinary incontinence [None]
  - Condition aggravated [None]
  - Impaired work ability [None]
  - Nausea [None]
  - Hot flush [None]
  - Amnesia [None]
  - Headache [None]
  - Malaise [None]
  - Feeling abnormal [None]
  - Dyspepsia [None]
  - Fatigue [None]
  - Diarrhoea [None]

NARRATIVE: CASE EVENT DATE: 20160730
